FAERS Safety Report 12419676 (Version 3)
Quarter: 2016Q2

REPORT INFORMATION
  Report Type: Spontaneous
  Country: JP (occurrence: JP)
  Receive Date: 20160531
  Receipt Date: 20160613
  Transmission Date: 20160815
  Serious: Yes (Other)
  Sender: FDA-Public Use
  Company Number: JP-GLAXOSMITHKLINE-JP2016JPN075209

PATIENT
  Age: 73 Year
  Sex: Male

DRUGS (5)
  1. CERNILTON [Concomitant]
     Dosage: UNK
     Dates: start: 20160213
  2. AVOLVE [Suspect]
     Active Substance: DUTASTERIDE
     Indication: BENIGN PROSTATIC HYPERPLASIA
     Dosage: 0.5 MG, QD
     Route: 048
     Dates: start: 20160213
  3. BETANIS [Suspect]
     Active Substance: MIRABEGRON
     Dosage: UNK
     Route: 048
     Dates: start: 20160213, end: 20160525
  4. URIEF [Concomitant]
     Active Substance: SILODOSIN
     Dosage: UNK
     Dates: start: 20160213
  5. ZALUTIA [Concomitant]
     Active Substance: TADALAFIL
     Dosage: UNK
     Dates: start: 201604, end: 20160506

REACTIONS (3)
  - Chills [Recovered/Resolved]
  - Abdominal pain lower [Recovered/Resolved]
  - Faecaloma [Recovered/Resolved]

NARRATIVE: CASE EVENT DATE: 20160505
